FAERS Safety Report 6180813-9 (Version None)
Quarter: 2009Q2

REPORT INFORMATION
  Report Type: 
  Country: None (occurrence: None)
  Receive Date: 20090506
  Receipt Date: 20090429
  Transmission Date: 20091009
  Serious: Yes (Hospitalization)
  Sender: FDA-Public Use
  Company Number: DE-BAXTER-2009BH002458

PATIENT
  Age: 58 Year
  Sex: Male

DRUGS (15)
  1. SEVOFLURANE [Suspect]
     Indication: ANAESTHESIA
     Route: 065
     Dates: start: 20081203, end: 20081203
  2. SIMVASTATIN [Suspect]
     Indication: ANAESTHESIA
     Route: 065
     Dates: start: 20081203, end: 20081203
  3. SEROQUEL [Suspect]
     Indication: ANAESTHESIA
     Route: 065
     Dates: start: 20081203, end: 20081203
  4. TREVILOR [Suspect]
     Indication: ANAESTHESIA
     Route: 065
     Dates: start: 20081203, end: 20081203
  5. LITHIUM CARBONATE [Suspect]
     Indication: ANAESTHESIA
     Route: 065
     Dates: start: 20081203, end: 20081203
  6. PROPOFOL [Suspect]
     Indication: ANAESTHESIA
     Route: 065
     Dates: start: 20081203, end: 20081203
  7. MIDAZOLAM HCL [Concomitant]
  8. PAVULON [Concomitant]
     Dates: start: 20081203, end: 20081203
  9. ROCURONIUM BROMIDE [Concomitant]
     Dates: start: 20081203, end: 20081203
  10. SUFENTA PRESERVATIVE FREE [Concomitant]
     Dates: start: 20081203, end: 20081203
  11. BASOCEF [Concomitant]
     Dates: start: 20081203, end: 20081203
  12. ELECTROLYTE SOLUTIONS [Concomitant]
     Dates: start: 20081203, end: 20081203
  13. HYDROXYETHYLCELLULOSE [Concomitant]
     Dates: start: 20081203, end: 20081203
  14. METFORMIN HCL [Concomitant]
  15. LITHIUM CARBONATE [Concomitant]

REACTIONS (3)
  - COMA [None]
  - RENAL FAILURE [None]
  - RHABDOMYOLYSIS [None]
